FAERS Safety Report 6478238-1 (Version None)
Quarter: 2009Q4

REPORT INFORMATION
  Report Type: 
  Country: None (occurrence: None)
  Receive Date: 20091207
  Receipt Date: 20091207
  Transmission Date: 20100525
  Serious: Yes (Other)
  Sender: FDA-Public Use
  Company Number: US-PFIZER INC-2009258813

PATIENT
  Sex: Male
  Weight: 90.703 kg

DRUGS (2)
  1. NEURONTIN [Suspect]
     Indication: MIGRAINE
     Dosage: 300 MG, 2X/DAY
     Route: 048
     Dates: start: 20070101, end: 20080101
  2. PROZAC [Concomitant]
     Indication: DEPRESSION
     Dosage: UNK

REACTIONS (5)
  - EYE SWELLING [None]
  - LIP SWELLING [None]
  - LOCAL SWELLING [None]
  - OEDEMA PERIPHERAL [None]
  - SWELLING FACE [None]
